FAERS Safety Report 7027828-6 (Version None)
Quarter: 2010Q4

REPORT INFORMATION
  Report Type: 
  Country: None (occurrence: None)
  Receive Date: 20101005
  Receipt Date: 20101001
  Transmission Date: 20110411
  Serious: Yes (Hospitalization)
  Sender: FDA-Public Use
  Company Number: US-BIOGENIDEC-2010BI026865

PATIENT
  Age: 35 Year
  Sex: Female
  Weight: 73 kg

DRUGS (15)
  1. TYSABRI [Suspect]
     Indication: MULTIPLE SCLEROSIS
     Route: 042
     Dates: start: 20080714, end: 20100609
  2. CYMBALTA [Concomitant]
     Route: 048
  3. NEXIUM [Concomitant]
     Route: 048
  4. OXYCONTIN [Concomitant]
     Route: 048
  5. OXYCODONE [Concomitant]
     Route: 048
  6. HYDROXYZINE [Concomitant]
  7. DIAZEPAM [Concomitant]
     Route: 048
  8. IMITREX [Concomitant]
     Indication: INSOMNIA
  9. SENNA [Concomitant]
     Route: 048
  10. OXYBUTIN [Concomitant]
  11. MELOXICAM [Concomitant]
     Route: 048
  12. LYRICA [Concomitant]
     Route: 048
  13. ZOFRAN [Concomitant]
     Route: 048
  14. SKELAXIN [Concomitant]
     Route: 048
  15. TEGRETOL-XR [Concomitant]
     Route: 048

REACTIONS (4)
  - CENTRAL NERVOUS SYSTEM LESION [None]
  - INSOMNIA [None]
  - INTERSTITIAL LUNG DISEASE [None]
  - MIGRAINE [None]
